FAERS Safety Report 10048838 (Version 1)
Quarter: 2014Q1

REPORT INFORMATION
  Report Type: Spontaneous
  Country: TN (occurrence: TN)
  Receive Date: 20140331
  Receipt Date: 20140331
  Transmission Date: 20141002
  Serious: Yes (Other)
  Sender: FDA-Public Use
  Company Number: PHHY2014TN033685

PATIENT
  Age: 33 Year
  Sex: Female

DRUGS (3)
  1. ASCORBIC ACID [Suspect]
     Dosage: 2 G DAILY
  2. MYCOPHENOLATE MOFETIL [Concomitant]
     Indication: IMMUNOSUPPRESSION
  3. TACROLIMUS [Concomitant]
     Indication: IMMUNOSUPPRESSION

REACTIONS (1)
  - Oxalosis [Unknown]
